FAERS Safety Report 8536632-9 (Version None)
Quarter: 2012Q3

REPORT INFORMATION
  Report Type: 
  Country: None (occurrence: None)
  Receive Date: 20120725
  Receipt Date: 20120723
  Transmission Date: 20120928
  Serious: Yes (Other)
  Sender: FDA-Public Use
  Company Number: US-PFIZER INC-2012135009

PATIENT
  Sex: Female
  Weight: 61.224 kg

DRUGS (7)
  1. HUMALOG [Concomitant]
     Indication: DIABETES MELLITUS
     Dosage: 10 IU, 3X/DAY
  2. NEURONTIN [Suspect]
     Indication: NEUROPATHY PERIPHERAL
     Dosage: 300 MG, 3X/DAY
     Route: 048
     Dates: start: 20120401
  3. NEURONTIN [Suspect]
     Indication: PAIN IN EXTREMITY
     Dosage: 300 MG, 5X/DAY
     Route: 048
  4. ROSUVASTATIN [Concomitant]
     Indication: BLOOD CHOLESTEROL INCREASED
     Dosage: 20MG, DAILY
  5. NEURONTIN [Suspect]
     Indication: OSTEOARTHRITIS
     Dosage: 600 MG, 3X/DAY
     Route: 048
  6. NEURONTIN [Suspect]
     Dosage: 600 MG, 2X/DAY
     Route: 048
     Dates: end: 20120501
  7. LANTUS [Concomitant]
     Indication: DIABETES MELLITUS
     Dosage: 40 IU, DAILY

REACTIONS (12)
  - MIDDLE INSOMNIA [None]
  - FEELING ABNORMAL [None]
  - VISION BLURRED [None]
  - CHEST DISCOMFORT [None]
  - VISUAL IMPAIRMENT [None]
  - COUGH [None]
  - HALLUCINATION [None]
  - CHOKING [None]
  - PAIN [None]
  - MALAISE [None]
  - DRUG INEFFECTIVE [None]
  - CIRCUMSTANCE OR INFORMATION CAPABLE OF LEADING TO MEDICATION ERROR [None]
